FAERS Safety Report 13756027 (Version 1)
Quarter: 2017Q3

REPORT INFORMATION
  Report Type: Spontaneous
  Country: TR (occurrence: TR)
  Receive Date: 20170714
  Receipt Date: 20170714
  Transmission Date: 20171127
  Serious: Yes (Other)
  Sender: FDA-Public Use
  Company Number: TR-SUN PHARMACEUTICAL INDUSTRIES LTD-2016R1-117176

PATIENT
  Age: 44 Year
  Sex: Male

DRUGS (8)
  1. SODIUM-VALPROATE [Concomitant]
     Indication: BIPOLAR DISORDER
     Dosage: 1500 MG, DAILY
  2. LITHIUM. [Suspect]
     Active Substance: LITHIUM
     Dosage: 600 MG, DAILY
     Route: 065
     Dates: start: 200809
  3. RISPERIDONE. [Concomitant]
     Active Substance: RISPERIDONE
     Indication: BIPOLAR DISORDER
  4. LITHIUM. [Suspect]
     Active Substance: LITHIUM
     Dosage: 900 MG, DAILY
     Route: 065
     Dates: start: 201101
  5. LITHIUM. [Suspect]
     Active Substance: LITHIUM
     Dosage: 300 MG, DAILY
     Route: 065
     Dates: start: 200810
  6. LITHIUM. [Suspect]
     Active Substance: LITHIUM
     Indication: BIPOLAR DISORDER
     Dosage: 1200 MG, DAILY
     Route: 065
     Dates: start: 1987
  7. LITHIUM. [Suspect]
     Active Substance: LITHIUM
     Dosage: 900 MG, DAILY
     Route: 065
     Dates: start: 200805
  8. LITHIUM. [Suspect]
     Active Substance: LITHIUM
     Dosage: 300 MG, DAILY
     Route: 065
     Dates: start: 201103

REACTIONS (1)
  - Congenital cystic kidney disease [Recovering/Resolving]
